FAERS Safety Report 24575977 (Version 1)
Quarter: 2024Q4

REPORT INFORMATION
  Report Type: Spontaneous
  Country: ES (occurrence: None)
  Receive Date: 20241102
  Receipt Date: 20241102
  Transmission Date: 20250114
  Serious: Yes (Other)
  Sender: Public
  Company Number: None

PATIENT
  Sex: Female

DRUGS (2)
  1. DULOXETINE [Suspect]
     Active Substance: DULOXETINE
     Dosage: 60 MG
  2. VEDOLIZUMAB [Suspect]
     Active Substance: VEDOLIZUMAB
     Dosage: 300 MG  INTRAVENOUS
     Route: 042

REACTIONS (8)
  - Lower respiratory tract infection [None]
  - Hernia [None]
  - Breast pain [None]
  - Tooth abscess [None]
  - Fibromyalgia [None]
  - Breast mass [None]
  - Nasopharyngitis [None]
  - Influenza [None]
